FAERS Safety Report 8398580-7 (Version None)
Quarter: 2012Q2

REPORT INFORMATION
  Report Type: 
  Country: None (occurrence: None)
  Receive Date: 20120524
  Receipt Date: 20120511
  Transmission Date: 20120825
  Serious: Yes (Hospitalization)
  Sender: FDA-Public Use
  Company Number: 2012SP025539

PATIENT
  Age: 20 Year
  Sex: Male

DRUGS (3)
  1. CLOBETASOL PROPIONATE [Suspect]
     Indication: PRURITUS
     Dosage: TOP
     Route: 061
  2. ELOCON [Suspect]
     Indication: PRURITUS
     Dosage: TOP
     Route: 061
  3. BECLOMETHASONE DIPROPIONATE [Suspect]
     Indication: PRURITUS
     Dosage: TOP
     Route: 061

REACTIONS (1)
  - ACARODERMATITIS [None]
